FAERS Safety Report 20518819 (Version 1)
Quarter: 2022Q1

REPORT INFORMATION
  Report Type: Report from Study
  Country: US (occurrence: None)
  Receive Date: 20220225
  Receipt Date: 20220225
  Transmission Date: 20220423
  Serious: Yes (Disabling)
  Sender: FDA-Public Use
  Company Number: US-Merck Healthcare KGaA-9300623

PATIENT
  Age: 53 Year
  Sex: Female

DRUGS (1)
  1. MAVENCLAD [Suspect]
     Active Substance: CLADRIBINE
     Indication: Multiple sclerosis
     Dosage: YEAR ONE THERAPY
     Route: 048
     Dates: start: 20210810

REACTIONS (2)
  - Bedridden [Unknown]
  - Wound [Unknown]

NARRATIVE: CASE EVENT DATE: 20210101
